FAERS Safety Report 4279705-1 (Version None)
Quarter: 2004Q1

REPORT INFORMATION
  Report Type: 
  Country: None (occurrence: None)
  Receive Date: 20040123
  Receipt Date: 20040115
  Transmission Date: 20041129
  Serious: Yes (Hospitalization)
  Sender: FDA-Public Use
  Company Number: HQWYE383715JAN04

PATIENT
  Age: 81 Year
  Sex: Male

DRUGS (3)
  1. CORDARONE [Suspect]
     Indication: ATRIAL FIBRILLATION
     Dosage: 200 MG 1 X PER 1 DAY
     Route: 048
     Dates: start: 20020415
  2. COUMADIN [Concomitant]
  3. DIAMICRON (GLICLAZIDE) [Concomitant]

REACTIONS (3)
  - ANAEMIA [None]
  - CORONARY ARTERY INSUFFICIENCY [None]
  - HYPOTHYROIDISM [None]
